FAERS Safety Report 7433998-8 (Version None)
Quarter: 2011Q2

REPORT INFORMATION
  Report Type: 
  Country: None (occurrence: None)
  Receive Date: 20110421
  Receipt Date: 20110421
  Transmission Date: 20111010
  Serious: Yes (Other)
  Sender: FDA-Public Use
  Company Number: None

PATIENT
  Sex: Female
  Weight: 78.4723 kg

DRUGS (2)
  1. SEROQUEL [Suspect]
     Indication: BACK PAIN
     Dosage: 100ML MORNING; 600ML BEDTIME
     Dates: start: 20101216
  2. SEROQUEL [Suspect]
     Indication: DEPRESSION
     Dosage: 100ML MORNING; 600ML BEDTIME
     Dates: start: 20101216

REACTIONS (8)
  - AMNESIA [None]
  - FEELING COLD [None]
  - ABASIA [None]
  - CHEST PAIN [None]
  - EXTRASYSTOLES [None]
  - ARTHRALGIA [None]
  - DYSSTASIA [None]
  - FEELING ABNORMAL [None]
